FAERS Safety Report 7088240-7 (Version None)
Quarter: 2010Q4

REPORT INFORMATION
  Report Type: 
  Country: None (occurrence: None)
  Receive Date: 20101028
  Receipt Date: 20101018
  Transmission Date: 20110411
  Serious: Yes (Hospitalization)
  Sender: FDA-Public Use
  Company Number: 020523

PATIENT
  Sex: Female
  Weight: 82 kg

DRUGS (12)
  1. LACOSAMIDE [Suspect]
     Indication: CONVULSION
     Dosage: 150 MG BID ORAL
     Route: 048
     Dates: start: 20090101
  2. KEPPRA [Suspect]
     Indication: CONVULSION
     Dosage: (1500 MG BID ORAL), (1000 MG BID ORAL)
     Route: 048
     Dates: start: 20090101, end: 20100401
  3. KEPPRA [Suspect]
     Indication: CONVULSION
     Dosage: (1500 MG BID ORAL), (1000 MG BID ORAL)
     Route: 048
     Dates: start: 20100401
  4. LAMICTAL [Suspect]
     Indication: CONVULSION
     Dosage: 300 MG BID ORAL
     Route: 048
     Dates: start: 20090101
  5. HYDROCORTISONE [Concomitant]
  6. ATIVAN [Concomitant]
  7. VALIUM [Concomitant]
  8. VITAMIN D [Concomitant]
  9. AMBIEN [Concomitant]
  10. FIORICET [Concomitant]
  11. BONIVA [Concomitant]
  12. TRIMETOPRIM /00158501/ [Concomitant]

REACTIONS (8)
  - CONDITION AGGRAVATED [None]
  - CONVULSION [None]
  - DYSARTHRIA [None]
  - FATIGUE [None]
  - MIGRAINE [None]
  - NAUSEA [None]
  - SOMNOLENCE [None]
  - VOMITING [None]
